FAERS Safety Report 6274593-6 (Version None)
Quarter: 2009Q3

REPORT INFORMATION
  Report Type: 
  Country: None (occurrence: None)
  Receive Date: 20090720
  Receipt Date: 20090714
  Transmission Date: 20100115
  Serious: Yes (Hospitalization)
  Sender: FDA-Public Use
  Company Number: US-AVENTIS-200915378US

PATIENT
  Sex: Male
  Weight: 158.3 kg

DRUGS (2)
  1. LANTUS [Suspect]
     Indication: TYPE 2 DIABETES MELLITUS
     Dosage: DOSE: UNK
     Route: 058
     Dates: end: 20081201
  2. LANTUS [Suspect]
     Dosage: DOSE: DOSE AT 7AM AND DOSE AT 2PM
     Route: 058
     Dates: start: 20090106

REACTIONS (1)
  - KIDNEY TRANSPLANT REJECTION [None]
